FAERS Safety Report 21298880 (Version 1)
Quarter: 2022Q3

REPORT INFORMATION
  Report Type: Spontaneous
  Country: US (occurrence: None)
  Receive Date: 20220904
  Receipt Date: 20220904
  Transmission Date: 20221027
  Serious: Yes (Disabling, Other)
  Sender: FDA-Public Use
  Company Number: None

PATIENT
  Age: 48 Year
  Sex: 0
  Weight: 83.25 kg

DRUGS (7)
  1. OFLOXACIN [Suspect]
     Active Substance: OFLOXACIN
     Indication: Ear infection
     Dosage: OTHER QUANTITY : 5 DROP(S);?FREQUENCY : TWICE A DAY;?
     Route: 001
     Dates: start: 20220828, end: 20220904
  2. LEVOFLOXACIN [Concomitant]
     Active Substance: LEVOFLOXACIN
  3. ZINC [Concomitant]
     Active Substance: ZINC
  4. Vitaman D [Concomitant]
  5. MELATONIN [Concomitant]
     Active Substance: MELATONIN
  6. prebiotic [Concomitant]
  7. IRON [Concomitant]
     Active Substance: IRON

REACTIONS (3)
  - Ear haemorrhage [None]
  - Pustule [None]
  - Drug ineffective [None]

NARRATIVE: CASE EVENT DATE: 20220828
